FAERS Safety Report 5490967-5 (Version None)
Quarter: 2007Q4

REPORT INFORMATION
  Report Type: 
  Country: None (occurrence: None)
  Receive Date: 20071019
  Receipt Date: 20071009
  Transmission Date: 20080405
  Serious: Yes (Other)
  Sender: FDA-Public Use
  Company Number: JP-PFIZER INC-2007085123

PATIENT
  Age: 57 Year
  Sex: Male

DRUGS (2)
  1. GABAPEN [Suspect]
     Indication: PAIN
     Route: 048
     Dates: start: 20070919, end: 20071010
  2. DRUG, UNSPECIFIED [Concomitant]

REACTIONS (1)
  - DELIRIUM [None]
